FAERS Safety Report 15467675 (Version 6)
Quarter: 2019Q1

REPORT INFORMATION
  Report Type: Spontaneous
  Country: US (occurrence: US)
  Receive Date: 20181005
  Receipt Date: 20190318
  Transmission Date: 20190417
  Serious: No
  Sender: FDA-Public Use
  Company Number: US-PFIZER INC-2018373342

PATIENT
  Age: 66 Year
  Sex: Female
  Weight: 75.3 kg

DRUGS (4)
  1. REVATIO [Suspect]
     Active Substance: SILDENAFIL CITRATE
     Indication: PULMONARY HYPERTENSION
     Dosage: 20 MG, THRICE DAILY
     Route: 048
     Dates: start: 2014
  2. REVATIO [Suspect]
     Active Substance: SILDENAFIL CITRATE
     Dosage: 20 MG, 3X/DAY [1.5 TABS DAILY 3 TIMES A DAILY]
     Route: 048
  3. REVATIO [Suspect]
     Active Substance: SILDENAFIL CITRATE
     Dosage: 30 MG, THRICE DAILY (1.5 PILLS THRICE DAILY )
     Route: 048
  4. REVATIO [Suspect]
     Active Substance: SILDENAFIL CITRATE
     Dosage: 30 MG, THRICE DAILY (1.5 PILLS THRICE DAILY OR 4.5 PILLS DAILY)
     Route: 048
     Dates: start: 201807

REACTIONS (3)
  - Malaise [Unknown]
  - Product use issue [Unknown]
  - Cough [Unknown]

NARRATIVE: CASE EVENT DATE: 201807
